FAERS Safety Report 8806664 (Version 1)
Quarter: 2012Q4

REPORT INFORMATION
  Report Type: Spontaneous
  Country: GB (occurrence: None)
  Receive Date: 20120919
  Receipt Date: 20120919
  Transmission Date: 20130627
  Serious: Yes (Hospitalization, Other)
  Sender: FDA-Public Use
  Company Number: 2012SUN00004

PATIENT
  Age: 36 Year
  Sex: Female

DRUGS (2)
  1. CARBAMAZEPINE [Suspect]
  2. ETONOGESTREL [Suspect]
     Route: 059

REACTIONS (6)
  - Drug interaction [None]
  - Drug ineffective [None]
  - Ectopic pregnancy [None]
  - Abortion [None]
  - Exposure during pregnancy [None]
  - Ruptured ectopic pregnancy [None]
